FAERS Safety Report 11195493 (Version 1)
Quarter: 2015Q2

REPORT INFORMATION
  Report Type: Spontaneous
  Country: US (occurrence: US)
  Receive Date: 20150617
  Receipt Date: 20150617
  Transmission Date: 20150821
  Serious: Yes (Hospitalization)
  Sender: FDA-Public Use
  Company Number: US-ELI_LILLY_AND_COMPANY-US201506002692

PATIENT
  Sex: Male

DRUGS (7)
  1. AXIRON [Suspect]
     Active Substance: TESTOSTERONE
     Indication: BLOOD TESTOSTERONE DECREASED
     Dosage: 120 MG, QD
     Route: 061
     Dates: start: 2012
  2. ADVAIR HFA [Concomitant]
     Active Substance: FLUTICASONE PROPIONATE\SALMETEROL XINAFOATE
     Dosage: UNK, UNKNOWN
     Route: 065
  3. IRON [Concomitant]
     Active Substance: IRON
     Dosage: UNK, UNKNOWN
     Route: 065
  4. TRAZODONE [Concomitant]
     Active Substance: TRAZODONE HYDROCHLORIDE
     Dosage: UNK, UNKNOWN
     Route: 065
  5. VITAMIN D [Concomitant]
     Active Substance: CHOLECALCIFEROL
     Dosage: UNK UNK, UNKNOWN
     Route: 065
  6. AXIRON [Suspect]
     Active Substance: TESTOSTERONE
     Dosage: 150 MG, QD
     Route: 061
     Dates: start: 20150605
  7. VITAMIN B12 [Concomitant]
     Active Substance: CYANOCOBALAMIN
     Dosage: UNK, UNKNOWN
     Route: 065

REACTIONS (4)
  - Pneumonia [Recovered/Resolved]
  - Blood testosterone decreased [Not Recovered/Not Resolved]
  - Prescribed overdose [Unknown]
  - Pneumonia [Unknown]

NARRATIVE: CASE EVENT DATE: 2013
